FAERS Safety Report 10726477 (Version 1)
Quarter: 2015Q1

REPORT INFORMATION
  Report Type: Report from Study
  Country: US (occurrence: US)
  Receive Date: 20150121
  Receipt Date: 20150121
  Transmission Date: 20150721
  Serious: Yes (Death, Hospitalization, Other)
  Sender: FDA-Public Use
  Company Number: US-ABBVIE-15K-163-1334283-00

PATIENT
  Age: 76 Year
  Sex: Female

DRUGS (1)
  1. HUMIRA [Suspect]
     Active Substance: ADALIMUMAB
     Indication: RHEUMATOID ARTHRITIS
     Route: 058
     Dates: start: 20140522, end: 201409

REACTIONS (5)
  - Abdominal pain [Fatal]
  - Gallbladder operation [Unknown]
  - Vomiting [Fatal]
  - Malaise [Unknown]
  - Nausea [Fatal]

NARRATIVE: CASE EVENT DATE: 2014
